FAERS Safety Report 5018177-6 (Version None)
Quarter: 2006Q2

REPORT INFORMATION
  Report Type: 
  Country: None (occurrence: None)
  Receive Date: 20060530
  Receipt Date: 20060517
  Transmission Date: 20061013
  Serious: Yes (Hospitalization, Other)
  Sender: FDA-Public Use
  Company Number: 2006066222

PATIENT
  Age: 39 Year
  Sex: Male

DRUGS (1)
  1. LIPITOR [Suspect]
     Indication: ILL-DEFINED DISORDER
     Dosage: 10 MG (10 MG, 1 IN 1 D) , ORAL
     Route: 048

REACTIONS (6)
  - ACUTE CORONARY SYNDROME [None]
  - BLOOD CREATINE PHOSPHOKINASE INCREASED [None]
  - CHEST PAIN [None]
  - MYALGIA [None]
  - TRANSIENT ISCHAEMIC ATTACK [None]
  - TROPONIN INCREASED [None]
